FAERS Safety Report 11614674 (Version 3)
Quarter: 2016Q1

REPORT INFORMATION
  Report Type: Report from Study
  Country: BR (occurrence: BR)
  Receive Date: 20151009
  Receipt Date: 20160115
  Transmission Date: 20160525
  Serious: Yes (Hospitalization, Other)
  Sender: FDA-Public Use
  Company Number: BR-ROCHE-1643947

PATIENT
  Sex: Female
  Weight: 49 kg

DRUGS (5)
  1. ACTEMRA [Suspect]
     Active Substance: TOCILIZUMAB
     Indication: RHEUMATOID ARTHRITIS
     Dosage: LATEST TOCILIZUMAB INFUSION: 17/DEC/2015
     Route: 042
     Dates: start: 20120518
  2. ACTONEL [Concomitant]
     Active Substance: RISEDRONATE SODIUM
     Indication: OSTEOPOROSIS
     Route: 065
  3. CODATEN [Concomitant]
     Active Substance: CODEINE PHOSPHATE\DICLOFENAC SODIUM
     Indication: PAIN
     Route: 065
  4. FOLIC ACID. [Concomitant]
     Active Substance: FOLIC ACID
     Dosage: 2 TABLETS AFTER METHOTREXATE INJECTION
     Route: 065
  5. METHOTREXATE [Concomitant]
     Active Substance: METHOTREXATE
     Route: 065

REACTIONS (5)
  - Emphysema [Unknown]
  - Pain [Not Recovered/Not Resolved]
  - Inflammation [Unknown]
  - Foot deformity [Unknown]
  - Ill-defined disorder [Not Recovered/Not Resolved]

NARRATIVE: CASE EVENT DATE: 2015
